FAERS Safety Report 12921619 (Version 2)
Quarter: 2016Q4

REPORT INFORMATION
  Report Type: Spontaneous
  Country: TR (occurrence: TR)
  Receive Date: 20161108
  Receipt Date: 20161227
  Transmission Date: 20170207
  Serious: Yes (Hospitalization)
  Sender: FDA-Public Use
  Company Number: TR-IMPAX LABORATORIES, INC-2016-IPXL-01490

PATIENT
  Age: 52 Year
  Sex: Female

DRUGS (3)
  1. CALCIUM [Concomitant]
     Active Substance: CALCIUM
     Indication: OSTEOPOROSIS POSTMENOPAUSAL
     Dosage: 1 G, DAILY
     Route: 048
  2. VITAMIN D3 [Concomitant]
     Active Substance: CHOLECALCIFEROL
     Indication: OSTEOPOROSIS POSTMENOPAUSAL
     Dosage: 800 IU, DAILY
     Route: 065
  3. ALENDRONATE SODIUM IR [Suspect]
     Active Substance: ALENDRONATE SODIUM
     Indication: OSTEOPOROSIS POSTMENOPAUSAL
     Dosage: 70 MG, 1 /WEEK
     Route: 048

REACTIONS (1)
  - Polyarthritis [Recovered/Resolved]
